FAERS Safety Report 18794544 (Version 1)
Quarter: 2021Q1

REPORT INFORMATION
  Report Type: Spontaneous
  Country: GB (occurrence: GB)
  Receive Date: 20210127
  Receipt Date: 20210127
  Transmission Date: 20210419
  Serious: Yes (Disabling, Other)
  Sender: FDA-Public Use
  Company Number: GB-BAYER-2021-032470

PATIENT
  Age: 68 Year
  Sex: Female
  Weight: 69.85 kg

DRUGS (6)
  1. CRANBERRY [VACCINIUM MACROCARPON] [Concomitant]
     Active Substance: CRANBERRY
     Dosage: UNK
  2. VITAMIN B COMPOUND [NICOTINAMIDE;PYRIDOXINE HYDROCHLORIDE;RIBOFLAV [Concomitant]
     Dosage: UNK
  3. CHONDROITIN SULFATE;GLUCOSAMINE [Concomitant]
     Dosage: UNK
  4. VITAMIN D [VITAMIN D NOS] [Concomitant]
     Active Substance: VITAMIN D NOS
     Dosage: UNK
  5. CIPROXIN [Suspect]
     Active Substance: CIPROFLOXACIN
     Indication: CYSTITIS
     Dosage: 1 DF, BID
     Route: 048
     Dates: start: 20201213, end: 20201217
  6. CHONDROITIN SULFATE;GLUCOSAMINE [Concomitant]
     Dosage: UNK

REACTIONS (8)
  - Pollakiuria [Unknown]
  - Pelvic pain [Unknown]
  - Bladder pain [Unknown]
  - Haematuria [Unknown]
  - Gastrointestinal inflammation [Recovered/Resolved with Sequelae]
  - Sensitive skin [Unknown]
  - Frequent bowel movements [Unknown]
  - Vulvovaginal inflammation [Recovered/Resolved with Sequelae]

NARRATIVE: CASE EVENT DATE: 20201215
